FAERS Safety Report 6949942-3 (Version None)
Quarter: 2010Q3

REPORT INFORMATION
  Report Type: 
  Country: None (occurrence: None)
  Receive Date: 20100828
  Receipt Date: 20100115
  Transmission Date: 20110219
  Serious: No
  Sender: FDA-Public Use
  Company Number: US-ABBOTT-10P-163-0620546-00

PATIENT
  Sex: Female
  Weight: 78.088 kg

DRUGS (11)
  1. NIASPAN [Suspect]
     Indication: BLOOD CHOLESTEROL INCREASED
     Route: 048
  2. NIASPAN [Suspect]
     Indication: HIGH DENSITY LIPOPROTEIN DECREASED
  3. NIASPAN [Suspect]
     Indication: BLOOD TRIGLYCERIDES INCREASED
  4. ERYTHROMYCIN [Concomitant]
     Indication: INGROWING NAIL
     Dates: start: 20100101
  5. METFORMIN [Concomitant]
     Indication: DIABETES MELLITUS
     Dates: start: 20091207
  6. TENORMIN [Concomitant]
     Indication: HYPERTENSION
  7. COZAAR [Concomitant]
     Indication: HYPERTENSION
  8. NEXIUM [Concomitant]
     Indication: GASTROOESOPHAGEAL REFLUX DISEASE
  9. MELOXICAM [Concomitant]
     Indication: ARTHRITIS
  10. ESTRADIOL [Concomitant]
     Indication: HORMONE REPLACEMENT THERAPY
  11. ASPIRIN [Concomitant]
     Indication: PRODUCT USED FOR UNKNOWN INDICATION

REACTIONS (3)
  - DIZZINESS [None]
  - ERYTHEMA [None]
  - FLUSHING [None]
